FAERS Safety Report 7355353-1 (Version None)
Quarter: 2011Q1

REPORT INFORMATION
  Report Type: 
  Country: None (occurrence: None)
  Receive Date: 20110316
  Receipt Date: 20110308
  Transmission Date: 20110831
  Serious: Yes (Hospitalization)
  Sender: FDA-Public Use
  Company Number: NL-MEDIMMUNE-MEDI-0012830

PATIENT
  Sex: Male
  Weight: 8.2 kg

DRUGS (5)
  1. SYNAGIS [Suspect]
     Route: 030
     Dates: start: 20101001, end: 20101001
  2. SYNAGIS [Suspect]
     Route: 030
     Dates: start: 20101029, end: 20101029
  3. ACETYLSALICYLATE CALCIUM [Concomitant]
  4. SYNAGIS [Suspect]
     Route: 030
     Dates: start: 20101122, end: 20101122
  5. SYNAGIS [Suspect]
     Route: 030
     Dates: start: 20101220, end: 20101220

REACTIONS (8)
  - COUGH [None]
  - INFANTILE SPITTING UP [None]
  - NASAL CONGESTION [None]
  - WHEEZING [None]
  - OXYGEN SATURATION DECREASED [None]
  - LARYNGOSPASM [None]
  - OROPHARYNGEAL PAIN [None]
  - DIARRHOEA [None]
